FAERS Safety Report 6953812-4 (Version None)
Quarter: 2010Q3

REPORT INFORMATION
  Report Type: 
  Country: None (occurrence: None)
  Receive Date: 20100829
  Receipt Date: 20100621
  Transmission Date: 20110219
  Serious: No
  Sender: FDA-Public Use
  Company Number: US-ABBOTT-10P-163-0653734-00

PATIENT
  Sex: Male
  Weight: 93.07 kg

DRUGS (6)
  1. NIASPAN [Suspect]
     Indication: BLOOD CHOLESTEROL
     Dates: start: 20100501
  2. ATENOLOL [Concomitant]
     Indication: BLOOD PRESSURE
  3. BENICAR HCT [Concomitant]
     Indication: BLOOD PRESSURE
     Dosage: 40/12.5
  4. CRESTOR [Concomitant]
     Indication: BLOOD CHOLESTEROL
  5. AVODART [Concomitant]
     Indication: PROSTATIC DISORDER
  6. PRILOSEC [Concomitant]
     Indication: PRODUCT USED FOR UNKNOWN INDICATION

REACTIONS (2)
  - DRUG DOSE OMISSION [None]
  - FLUSHING [None]
